FAERS Safety Report 6418738-3 (Version None)
Quarter: 2009Q4

REPORT INFORMATION
  Report Type: 
  Country: None (occurrence: None)
  Receive Date: 20091028
  Receipt Date: 20091020
  Transmission Date: 20100525
  Serious: Yes (Hospitalization, Other)
  Sender: FDA-Public Use
  Company Number: US-AMGEN-QUU370194

PATIENT
  Sex: Male

DRUGS (1)
  1. ENBREL [Suspect]
     Indication: PSORIASIS
     Route: 058
     Dates: start: 20040601

REACTIONS (12)
  - CLOSTRIDIUM DIFFICILE COLITIS [None]
  - CYST RUPTURE [None]
  - FALL [None]
  - HIP FRACTURE [None]
  - INFECTION [None]
  - INJECTION SITE ERYTHEMA [None]
  - LOWER LIMB FRACTURE [None]
  - OBESITY [None]
  - PELVIC FRACTURE [None]
  - PROCEDURAL COMPLICATION [None]
  - PYREXIA [None]
  - RIB FRACTURE [None]
